FAERS Safety Report 6057147-6 (Version None)
Quarter: 2009Q1

REPORT INFORMATION
  Report Type: 
  Country: None (occurrence: None)
  Receive Date: 20090129
  Receipt Date: 20080222
  Transmission Date: 20090719
  Serious: No
  Sender: FDA-Public Use
  Company Number: A0664065A

PATIENT
  Sex: Male

DRUGS (1)
  1. WELLBUTRIN [Suspect]
     Indication: BIPOLAR DISORDER
     Route: 048
     Dates: start: 20020101

REACTIONS (6)
  - ERECTION INCREASED [None]
  - EXCESSIVE MASTURBATION [None]
  - LIBIDO INCREASED [None]
  - SEXUAL ABUSE [None]
  - SEXUAL DYSFUNCTION [None]
  - VICTIM OF SEXUAL ABUSE [None]
